FAERS Safety Report 5416490-1 (Version None)
Quarter: 2007Q3

REPORT INFORMATION
  Report Type: 
  Country: None (occurrence: None)
  Receive Date: 20070816
  Receipt Date: 20070809
  Transmission Date: 20080115
  Serious: Yes (Hospitalization)
  Sender: FDA-Public Use
  Company Number: JP-NOVOPROD-265199

PATIENT
  Age: 59 Year
  Sex: Male

DRUGS (3)
  1. NOVOLIN N [Suspect]
     Dosage: 43 U, QD
     Route: 058
     Dates: end: 20070608
  2. NOVOLIN N [Suspect]
     Dosage: 900 U, QD
     Route: 058
     Dates: start: 20070608, end: 20070608
  3. ANTIDEPRESSANTS [Concomitant]

REACTIONS (2)
  - HYPOGLYCAEMIA [None]
  - SUICIDE ATTEMPT [None]
